FAERS Safety Report 6165970-2 (Version None)
Quarter: 2009Q2

REPORT INFORMATION
  Report Type: 
  Country: None (occurrence: None)
  Receive Date: 20090422
  Receipt Date: 20090416
  Transmission Date: 20091009
  Serious: Yes (Hospitalization, Other)
  Sender: FDA-Public Use
  Company Number: SPV1-2009-00229

PATIENT
  Age: 75 Year
  Sex: Female

DRUGS (7)
  1. FOSRENOL [Suspect]
     Indication: HYPERPHOSPHATAEMIA
     Dosage: 500 MG, TWO TABLETS WITH MEALS, ORAL
     Route: 048
     Dates: start: 20070101
  2. PHOSLO [Concomitant]
  3. ASPIRIN [Concomitant]
  4. GLYBURIDE [Concomitant]
  5. BENICAR [Concomitant]
  6. NORVASC [Concomitant]
  7. AMIODARONE HCL [Concomitant]

REACTIONS (8)
  - CLOSTRIDIAL INFECTION [None]
  - DECUBITUS ULCER [None]
  - FALL [None]
  - GAIT DISTURBANCE [None]
  - HYPOTENSION [None]
  - LOWER LIMB FRACTURE [None]
  - MALAISE [None]
  - TRAUMATIC FRACTURE [None]
